FAERS Safety Report 5263570-X (Version None)
Quarter: 2007Q1

REPORT INFORMATION
  Report Type: 
  Country: None (occurrence: None)
  Receive Date: 20070313
  Receipt Date: 20070228
  Transmission Date: 20070707
  Serious: Yes (Hospitalization, Other)
  Sender: FDA-Public Use
  Company Number: PHNU2006DE02585

PATIENT
  Age: 64 Year
  Sex: Male
  Weight: 73 kg

DRUGS (3)
  1. ZOMETA [Suspect]
     Indication: PROSTATE CANCER
     Dosage: 4 MG, EVERY 3 TO 4 WEEKS
     Route: 042
     Dates: start: 20050601
  2. TAXOTERE [Concomitant]
     Dosage: 145 MG, TIW
     Dates: start: 20060411, end: 20060814
  3. PREDNISOLONE [Concomitant]
     Dosage: 5 MG, TID
     Route: 065
     Dates: start: 20060411, end: 20060814

REACTIONS (11)
  - BIOPSY BONE ABNORMAL [None]
  - BONE DISORDER [None]
  - DENTAL CARIES [None]
  - DENTAL OPERATION [None]
  - DENTAL TREATMENT [None]
  - GENERAL ANAESTHESIA [None]
  - OSTEONECROSIS [None]
  - OSTEOTOMY [None]
  - PRIMARY SEQUESTRUM [None]
  - PROMOTION OF WOUND HEALING [None]
  - TOOTH EXTRACTION [None]
